FAERS Safety Report 5529351-4 (Version None)
Quarter: 2007Q4

REPORT INFORMATION
  Report Type: 
  Country: None (occurrence: None)
  Receive Date: 20071129
  Receipt Date: 20071120
  Transmission Date: 20080405
  Serious: Yes (Life-Threatening, Hospitalization, Congenital Anomaly)
  Sender: FDA-Public Use
  Company Number: A0682207A

PATIENT
  Sex: Female
  Weight: 2.3 kg

DRUGS (1)
  1. PAROXETINE [Suspect]
     Indication: DRUG USE FOR UNKNOWN INDICATION
     Dosage: 30MG PER DAY
     Dates: start: 20030918

REACTIONS (15)
  - AORTIC VALVE INCOMPETENCE [None]
  - CARDIAC DISORDER [None]
  - CARDIAC MURMUR [None]
  - CARDIOMEGALY [None]
  - CONGENITAL ANOMALY [None]
  - COUGH [None]
  - DRUG EXPOSURE DURING PREGNANCY [None]
  - FAILURE TO THRIVE [None]
  - HEART DISEASE CONGENITAL [None]
  - LEFT ATRIAL DILATATION [None]
  - PERSISTENT FOETAL CIRCULATION [None]
  - PULMONARY OEDEMA [None]
  - TRICUSPID VALVE INCOMPETENCE [None]
  - VENTRICULAR SEPTAL DEFECT [None]
  - WEIGHT GAIN POOR [None]
